FAERS Safety Report 9426012 (Version 1)
Quarter: 2013Q3

REPORT INFORMATION
  Report Type: Spontaneous
  Country: CA (occurrence: CA)
  Receive Date: 20130730
  Receipt Date: 20130730
  Transmission Date: 20140515
  Serious: Yes (Other)
  Sender: FDA-Public Use
  Company Number: CA-ASTRAZENECA-2013SE55179

PATIENT
  Age: 74 Year
  Sex: Male
  Weight: 70 kg

DRUGS (11)
  1. DIPRIVAN [Suspect]
     Dosage: 1 PERCENT, 5 ML, 1 EVERY 1 HOURS
     Route: 042
  2. ANECTINE [Concomitant]
     Route: 042
  3. CHLORHEXIDINE [Concomitant]
  4. DILANTIN [Concomitant]
  5. INSULIN [Concomitant]
  6. KEPPRA [Concomitant]
  7. LEVOPHED [Concomitant]
     Dosage: 1MG/ML
     Route: 042
  8. MAGNESIUM [Concomitant]
  9. METRONIDAZOLE [Concomitant]
  10. SYNTHROID [Concomitant]
  11. VITAMIN D [Concomitant]

REACTIONS (3)
  - Swollen tongue [Unknown]
  - Angioedema [Unknown]
  - Lip swelling [Unknown]
